FAERS Safety Report 25286293 (Version 1)
Quarter: 2025Q2

REPORT INFORMATION
  Report Type: Spontaneous
  Country: CN (occurrence: CN)
  Receive Date: 20250509
  Receipt Date: 20250509
  Transmission Date: 20250716
  Serious: Yes (Death, Other)
  Sender: ROCHE
  Company Number: CN-ROCHE-10000277734

PATIENT
  Sex: Male

DRUGS (1)
  1. BEVACIZUMAB [Suspect]
     Active Substance: BEVACIZUMAB
     Indication: Lung neoplasm malignant
     Route: 065

REACTIONS (6)
  - Drug ineffective [Unknown]
  - Disease progression [Unknown]
  - Paralysis [Unknown]
  - Peripheral swelling [Unknown]
  - Haematemesis [Unknown]
  - Death [Fatal]
